FAERS Safety Report 24001338 (Version 1)
Quarter: 2024Q2

REPORT INFORMATION
  Report Type: Spontaneous
  Country: US (occurrence: US)
  Receive Date: 20240621
  Receipt Date: 20240621
  Transmission Date: 20240715
  Serious: Yes (Other)
  Sender: FDA-Public Use
  Company Number: US-BAUSCHBL-2024BNL028419

PATIENT
  Age: 66 Year
  Sex: Female

DRUGS (2)
  1. WATER [Suspect]
     Active Substance: WATER
     Indication: Eye irrigation
     Route: 047
     Dates: start: 2024, end: 2024
  2. BIOTRUE HYDRATION BOOST [Suspect]
     Active Substance: GLYCERIN
     Indication: Eye irrigation
     Route: 047
     Dates: start: 2023

REACTIONS (6)
  - Mast cell activation syndrome [Unknown]
  - Discomfort [Recovering/Resolving]
  - Eye discharge [Recovering/Resolving]
  - Ocular hyperaemia [Recovering/Resolving]
  - Eyelid margin crusting [Recovering/Resolving]
  - Eye irritation [Recovering/Resolving]

NARRATIVE: CASE EVENT DATE: 20240101
